FAERS Safety Report 8747070 (Version 4)
Quarter: 2013Q1

REPORT INFORMATION
  Report Type: Report from Study
  Country: JP (occurrence: JP)
  Receive Date: 20120827
  Receipt Date: 20130224
  Transmission Date: 20140127
  Serious: No
  Sender: FDA-Public Use
  Company Number: JP-009507513-1208JPN004781

PATIENT
  Age: 56 Year
  Sex: Male
  Weight: 68 kg

DRUGS (19)
  1. PEGINTRON [Suspect]
     Indication: CHRONIC HEPATITIS C
     Dosage: 1.5 MICROGRAM PER KILOGRAM, QW
     Route: 058
     Dates: start: 20120411, end: 20120418
  2. PEGINTRON [Suspect]
     Dosage: 75 MICROGRAM, QW
     Route: 058
     Dates: start: 20120425, end: 20120425
  3. PEGINTRON [Suspect]
     Dosage: 100 MICROGRAM, UNK
     Dates: start: 20120502, end: 20120502
  4. PEGINTRON [Suspect]
     Dosage: 50 MICROGRAM, QW
     Route: 058
     Dates: start: 20120509, end: 20120530
  5. PEGINTRON [Suspect]
     Dosage: 40 MICROGRAM, QW
     Route: 058
     Dates: start: 20120606, end: 20120620
  6. PEGINTRON [Suspect]
     Dosage: 30 MICROGRAM, UNK
     Route: 058
     Dates: start: 20120627, end: 20120627
  7. PEGINTRON [Suspect]
     Dosage: 40 MICROGRAM, UNK
     Route: 058
     Dates: start: 20120704, end: 20120704
  8. PEGINTRON [Suspect]
     Dosage: 30 MICROGRAM, UNK
     Route: 058
     Dates: start: 20120711, end: 20120829
  9. PEGINTRON [Suspect]
     Dosage: 50 MICROGRAM, UNK
     Route: 058
     Dates: start: 20120905, end: 20120905
  10. REBETOL [Suspect]
     Indication: CHRONIC HEPATITIS C
     Dosage: 800 MG, QD
     Route: 048
     Dates: start: 20120411, end: 20120912
  11. TELAVIC [Suspect]
     Indication: CHRONIC HEPATITIS C
     Dosage: 1500 MG, QD
     Route: 048
     Dates: start: 20120411, end: 20120414
  12. TELAVIC [Suspect]
     Dosage: 1500 MG, QD
     Route: 048
     Dates: start: 20120417, end: 20120627
  13. NEO-MINOPHAGEN C [Concomitant]
     Indication: CHRONIC HEPATITIS C
     Dosage: UNK
     Route: 042
  14. URSO [Concomitant]
     Indication: CHRONIC HEPATITIS C
     Dosage: 600 MG, QD, FORMULATION: POR
     Route: 048
     Dates: end: 20120509
  15. GLYCYRON [Concomitant]
     Indication: CHRONIC HEPATITIS C
     Dosage: 150 MG, QD, FORMULATION: POR
     Route: 048
     Dates: end: 20120509
  16. TALION (BEPOTASTINE BESYLATE) [Concomitant]
     Indication: PROPHYLAXIS
     Dosage: 20 MG, QD
     Route: 048
     Dates: start: 20120411, end: 20120627
  17. NAUZELIN [Concomitant]
     Indication: PROPHYLAXIS
     Dosage: 30 MG, QD, FORMULATION: POR
     Route: 048
     Dates: start: 20120411, end: 20120523
  18. LOXONIN [Concomitant]
     Indication: PROPHYLAXIS
     Dosage: 60 MG PER DAY , PRN, FORMULATION:POR
     Route: 048
     Dates: start: 20120411, end: 20120516
  19. LOXONIN [Concomitant]
     Indication: PYREXIA

REACTIONS (1)
  - Platelet count decreased [Recovering/Resolving]
